FAERS Safety Report 18669108 (Version 5)
Quarter: 2021Q2

REPORT INFORMATION
  Report Type: Spontaneous
  Country: JP (occurrence: JP)
  Receive Date: 20201228
  Receipt Date: 20210531
  Transmission Date: 20210717
  Serious: Yes (Hospitalization, Other)
  Sender: FDA-Public Use
  Company Number: JP-ALLERGAN-2049692US

PATIENT
  Sex: Male
  Weight: 28 kg

DRUGS (1)
  1. BOTOX [Suspect]
     Active Substance: ONABOTULINUMTOXINA
     Indication: MUSCLE SPASTICITY
     Dosage: 120 UNITS, SINGLE
     Route: 030
     Dates: start: 20201208, end: 20201208

REACTIONS (3)
  - Product use issue [Unknown]
  - Testicular torsion [Recovered/Resolved with Sequelae]
  - Testicular necrosis [Recovered/Resolved]

NARRATIVE: CASE EVENT DATE: 20201211
